FAERS Safety Report 9729449 (Version 1)
Quarter: 2013Q4

REPORT INFORMATION
  Report Type: Spontaneous
  Country: US (occurrence: US)
  Receive Date: 20131204
  Receipt Date: 20131204
  Transmission Date: 20140711
  Serious: No
  Sender: FDA-Public Use
  Company Number: US-GILEAD-2009-0021392

PATIENT
  Sex: Male
  Weight: 91.58 kg

DRUGS (14)
  1. LETAIRIS [Suspect]
     Indication: PULMONARY ARTERIAL HYPERTENSION
     Route: 048
     Dates: start: 20071017
  2. REVATIO [Concomitant]
  3. VIAGRA [Concomitant]
  4. DIGOXIN [Concomitant]
  5. METOPROLOL [Concomitant]
  6. DIOVAN [Concomitant]
  7. ALDACTONE [Concomitant]
  8. COMBIVENT [Concomitant]
  9. ADVAIR [Concomitant]
  10. COLCHICINE [Concomitant]
  11. ANZEMET [Concomitant]
  12. BENADRYL [Concomitant]
  13. ALLOPURINOL [Concomitant]
  14. HERBAL MEDS [Concomitant]

REACTIONS (1)
  - Musculoskeletal pain [Recovering/Resolving]
